FAERS Safety Report 18874875 (Version 1)
Quarter: 2021Q1

REPORT INFORMATION
  Report Type: Spontaneous
  Country: US (occurrence: US)
  Receive Date: 20210211
  Receipt Date: 20210211
  Transmission Date: 20210420
  Serious: Yes (Hospitalization)
  Sender: FDA-Public Use
  Company Number: US-AMGEN-USASP2021021128

PATIENT
  Age: 79 Year
  Sex: Male

DRUGS (33)
  1. NACL [Concomitant]
     Active Substance: SODIUM CHLORIDE
     Dosage: 2000 MILLILITER, ONCE
     Route: 042
     Dates: start: 20201121, end: 20201121
  2. ACETAMINOPHEN. [Concomitant]
     Active Substance: ACETAMINOPHEN
     Indication: PROPHYLAXIS
     Dosage: 650?1000 MILLIGRAM
     Route: 048
     Dates: start: 20200317, end: 20201207
  3. DEXTROSE. [Concomitant]
     Active Substance: DEXTROSE
     Indication: PNEUMONIA
     Dosage: 50 MILLILITER, QD
     Route: 042
     Dates: start: 20201121, end: 20201123
  4. DIPHENHYDRAMINE. [Concomitant]
     Active Substance: DIPHENHYDRAMINE
     Indication: PROPHYLAXIS
     Dosage: 12.5?50 MG
     Route: 048
     Dates: start: 20200317, end: 20201207
  5. ACYCLOVIR [ACICLOVIR] [Concomitant]
     Active Substance: ACYCLOVIR
     Indication: ANTIVIRAL PROPHYLAXIS
     Dosage: 400 MILLIGRAM, BID
     Route: 048
     Dates: start: 20200316
  6. CEFTRIAXONE. [Concomitant]
     Active Substance: CEFTRIAXONE
     Indication: PNEUMONIA
     Dosage: 1 GRAM, QD
     Route: 042
     Dates: start: 20201121, end: 20201123
  7. IMMUNE GLOBULIN [Concomitant]
     Indication: HYPOGAMMAGLOBULINAEMIA
     Dosage: 25 GRAM, ONCE
     Route: 042
     Dates: start: 20201127, end: 20201127
  8. POTASSIUM CHLORIDE. [Concomitant]
     Active Substance: POTASSIUM CHLORIDE
     Indication: BLOOD POTASSIUM DECREASED
     Dosage: 20?480 MILLIEQUIVALENTS, ORAL AND IV
     Dates: start: 20201022, end: 20201129
  9. PROPRANOLOL [Concomitant]
     Active Substance: PROPRANOLOL HYDROCHLORIDE
     Indication: HYPERTENSION
     Dosage: 40 MILLIGRAM, QD
     Route: 048
     Dates: start: 2017
  10. DARATUMUMAB [Suspect]
     Active Substance: DARATUMUMAB
     Indication: PLASMA CELL MYELOMA
     Dosage: 1100 MILLIGRAM, DAY 1, 8, 15, EVERY 21 DAYS CYCLES
     Route: 042
     Dates: start: 20200317, end: 20200901
  11. BORTEZOMIB. [Suspect]
     Active Substance: BORTEZOMIB
     Indication: PLASMA CELL MYELOMA
     Dosage: 2.25 MILLIGRAM, DAY 1, 4, 8, 15, EVERY21 DAYS CYCLE
     Route: 058
     Dates: start: 20200317
  12. ACETAMINOPHEN. [Concomitant]
     Active Substance: ACETAMINOPHEN
     Indication: PNEUMONIA
  13. OXYGEN. [Concomitant]
     Active Substance: OXYGEN
     Indication: PNEUMONIA
     Dosage: 2880 LITER
     Route: 045
     Dates: start: 20201121, end: 20201123
  14. CYCLOPHOSPHAMIDE. [Suspect]
     Active Substance: CYCLOPHOSPHAMIDE
     Indication: PLASMA CELL MYELOMA
     Dosage: 50 MILLIGRAM, DAY 4, 5
     Route: 042
     Dates: start: 20201127, end: 20201128
  15. NACL [Concomitant]
     Active Substance: SODIUM CHLORIDE
     Indication: PNEUMONIA
     Dosage: 263 MILLILITER, ONCE AS NEEDED
     Route: 042
     Dates: start: 20201021, end: 20201021
  16. AMOXICILLIN;CLAVULANATE POTASSIUM [Concomitant]
     Active Substance: AMOXICILLIN\CLAVULANATE POTASSIUM
     Indication: PNEUMONIA
     Dosage: 1 DOSAGE FORM, Q12H
     Route: 048
     Dates: start: 20201124, end: 20201128
  17. ASPIRIN [ACETYLSALICYLIC ACID] [Concomitant]
     Active Substance: ASPIRIN
     Indication: THROMBOSIS PROPHYLAXIS
     Dosage: 81 MILLIGRAM, QD
     Route: 048
     Dates: start: 2017, end: 20201130
  18. DENOSUMAB [Concomitant]
     Active Substance: DENOSUMAB
     Indication: PROPHYLAXIS
     Dosage: 120 MILLIGRAM, QMO
     Route: 058
     Dates: start: 20180622
  19. DEXAMETHASONE SODIUM PHOSPHATE. [Concomitant]
     Active Substance: DEXAMETHASONE SODIUM PHOSPHATE
     Indication: PRODUCT USED FOR UNKNOWN INDICATION
     Dosage: 4 MILLIGRAM, ONCE
     Route: 042
     Dates: start: 20201023, end: 20201030
  20. NACL [Concomitant]
     Active Substance: SODIUM CHLORIDE
     Indication: FLUID REPLACEMENT
     Dosage: 1000 MILLILITER, ONCE
     Dates: start: 20201020, end: 20201020
  21. ONDANSETRON [Concomitant]
     Active Substance: ONDANSETRON
     Indication: SUPPORTIVE CARE
  22. POLYTRIM [Concomitant]
     Active Substance: POLYMYXIN B SULFATE\TRIMETHOPRIM SULFATE
     Indication: CONJUNCTIVITIS
     Dosage: 1 GTT DROPS, QID
     Route: 047
     Dates: start: 20200630
  23. AZITHROMYCIN ANHYDROUS. [Concomitant]
     Active Substance: AZITHROMYCIN ANHYDROUS
     Indication: PNEUMONIA
     Dosage: 250?500 MILLIGRAM, IV AND ORAL
     Route: 042
     Dates: start: 20201121, end: 20201128
  24. HEPARINUM [HEPARIN] [Concomitant]
     Indication: THROMBOSIS PROPHYLAXIS
     Dosage: 5000 INTERNATIONAL UNIT, TID
     Route: 058
     Dates: start: 20201122, end: 20201124
  25. MAGNESIUM SULFATE. [Concomitant]
     Active Substance: MAGNESIUM SULFATE
     Indication: BLOOD MAGNESIUM DECREASED
     Dosage: 2 GRAM, ONCE
     Route: 042
     Dates: start: 20201129, end: 20201129
  26. CARFILZOMIB [Suspect]
     Active Substance: CARFILZOMIB
     Indication: PLASMA CELL MYELOMA
     Dosage: UNK
     Route: 065
  27. DEXAMETHASONE. [Suspect]
     Active Substance: DEXAMETHASONE
     Indication: PLASMA CELL MYELOMA
     Dosage: 20 MILLIGRAM, DAY 1, 8, 15, EVERY 21 DAYS CYCLE
     Route: 042
     Dates: start: 20200317, end: 20200825
  28. AMLODIPINE [Concomitant]
     Active Substance: AMLODIPINE BESYLATE
     Indication: HYPERTENSION
     Dosage: 10 MILLIGRAM, QD
     Route: 048
     Dates: start: 2018
  29. NACL [Concomitant]
     Active Substance: SODIUM CHLORIDE
     Dosage: 1000 MILLILITER, QD
     Route: 042
     Dates: start: 20201127, end: 20201128
  30. BORTEZOMIB. [Suspect]
     Active Substance: BORTEZOMIB
     Dosage: 1.75 MILLIGRAM, DAY 1, 4, 8, 15, EVERY21 DAYS CYCLE
     Route: 058
     Dates: end: 20200821
  31. FLUDARABINE [Suspect]
     Active Substance: FLUDARABINE PHOSPHATE
     Indication: PLASMA CELL MYELOMA
     Dosage: 45 MILLIGRAM, DAY 4, 5
     Route: 042
     Dates: start: 20201127, end: 20201128
  32. NACL [Concomitant]
     Active Substance: SODIUM CHLORIDE
     Indication: SUPPORTIVE CARE
     Dosage: 250 MILLILITER, ONCE
     Route: 042
     Dates: start: 20201029, end: 20201029
  33. ONDANSETRON [Concomitant]
     Active Substance: ONDANSETRON
     Indication: PROPHYLAXIS OF NAUSEA AND VOMITING
     Dosage: 4?8 MG
     Route: 042
     Dates: start: 20201022, end: 20201203

REACTIONS (1)
  - Right ventricular dysfunction [Recovered/Resolved]

NARRATIVE: CASE EVENT DATE: 20201129
